FAERS Safety Report 9767497 (Version 1)
Quarter: 2013Q4

REPORT INFORMATION
  Report Type: Spontaneous
  Country: US (occurrence: None)
  Receive Date: 20131213
  Receipt Date: 20131213
  Transmission Date: 20140711
  Serious: Yes (Other)
  Sender: FDA-Public Use
  Company Number: 2013SA024687

PATIENT
  Age: 60 Year
  Sex: Female
  Weight: 113.4 kg

DRUGS (1)
  1. CAPZASIN [Suspect]
     Indication: NECK PAIN
     Route: 061

REACTIONS (6)
  - Scab [None]
  - Application site burn [None]
  - Application site erythema [None]
  - Application site pain [None]
  - Chemical injury [None]
  - Deformity [None]
